FAERS Safety Report 9726985 (Version 1)
Quarter: 2013Q4

REPORT INFORMATION
  Report Type: Spontaneous
  Country: DE (occurrence: DE)
  Receive Date: 20131203
  Receipt Date: 20131203
  Transmission Date: 20140711
  Serious: Yes (Other)
  Sender: FDA-Public Use
  Company Number: DE-TEVA-448173GER

PATIENT
  Age: 58 Year
  Sex: Female

DRUGS (3)
  1. BISOPROLOL-RATIOPHARM 1,25 MG FILMTABLETTEN [Suspect]
     Indication: HYPERTENSION
     Dosage: 2.5 MILLIGRAM DAILY;
     Route: 048
     Dates: start: 201310
  2. ATACAND [Suspect]
     Indication: HYPERTENSION
     Dosage: 32 MILLIGRAM DAILY;
     Route: 048
     Dates: start: 201310
  3. CARMEN [Suspect]
     Indication: HYPERTENSION
     Dosage: 20 MILLIGRAM DAILY;
     Route: 048
     Dates: start: 201310

REACTIONS (2)
  - Lenticular opacities [Not Recovered/Not Resolved]
  - Intraocular pressure increased [Not Recovered/Not Resolved]
